FAERS Safety Report 24246026 (Version 1)
Quarter: 2024Q3

REPORT INFORMATION
  Report Type: Spontaneous
  Country: GB (occurrence: GB)
  Receive Date: 20240824
  Receipt Date: 20240824
  Transmission Date: 20241016
  Serious: Yes (Other)
  Sender: ACCORD
  Company Number: GB-MLMSERVICE-20240807-PI154240-00095-1

PATIENT
  Age: 50 Year
  Sex: Female

DRUGS (8)
  1. HYDROXYCHLOROQUINE [Suspect]
     Active Substance: HYDROXYCHLOROQUINE
     Indication: Lichen planus
  2. MOMETASONE FUROATE [Concomitant]
     Active Substance: MOMETASONE FUROATE
     Indication: Lichen planus
     Dosage: 0.1% TWO TIMES WEEKLY TO THE NECK
  3. PIMECROLIMUS [Concomitant]
     Active Substance: PIMECROLIMUS
     Indication: Lichen planus
     Dosage: CREAM TWICE A DAY TO THE FACE
  4. TACROLIMUS [Concomitant]
     Active Substance: TACROLIMUS
     Indication: Lichen planopilaris
     Dosage: 0.1% OINTMENT TWICE DAILY
  5. TACROLIMUS [Concomitant]
     Active Substance: TACROLIMUS
     Indication: Lichen planus
     Dosage: 0.1% OINTMENT TWICE DAILY
  6. MOMETASONE FUROATE [Concomitant]
     Active Substance: MOMETASONE FUROATE
     Indication: Lichen planopilaris
     Dosage: 0.1% TWO TIMES WEEKLY TO THE NECK
  7. HYDROXYCHLOROQUINE [Suspect]
     Active Substance: HYDROXYCHLOROQUINE
     Indication: Lichen planopilaris
  8. PIMECROLIMUS [Concomitant]
     Active Substance: PIMECROLIMUS
     Indication: Lichen planopilaris
     Dosage: CREAM TWICE A DAY TO THE FACE

REACTIONS (4)
  - Skin hyperpigmentation [Recovering/Resolving]
  - Condition aggravated [Recovering/Resolving]
  - Lichen planus [Recovering/Resolving]
  - Off label use [Unknown]
